FAERS Safety Report 16266483 (Version 2)
Quarter: 2020Q4

REPORT INFORMATION
  Report Type: Spontaneous
  Country: US (occurrence: US)
  Receive Date: 20190502
  Receipt Date: 20201124
  Transmission Date: 20210113
  Serious: Yes (Other)
  Sender: FDA-Public Use
  Company Number: US-JNJFOC-20190437713

PATIENT
  Age: 63 Year
  Sex: Female
  Weight: 77.18 kg

DRUGS (1)
  1. REMICADE [Suspect]
     Active Substance: INFLIXIMAB
     Indication: CROHN^S DISEASE
     Route: 042

REACTIONS (5)
  - Drug hypersensitivity [Unknown]
  - Infusion related reaction [Unknown]
  - Dizziness [Recovered/Resolved]
  - Loss of consciousness [Unknown]
  - Weight increased [Unknown]
